FAERS Safety Report 4831901-8 (Version None)
Quarter: 2005Q4

REPORT INFORMATION
  Report Type: 
  Country: None (occurrence: None)
  Receive Date: 20051116
  Receipt Date: 20051103
  Transmission Date: 20060501
  Serious: Yes (Disabling)
  Sender: FDA-Public Use
  Company Number: 2005RR-01064

PATIENT
  Age: 43 Year
  Sex: Female

DRUGS (3)
  1. FLUOXETINE (FLUOXETINE) CAPSULE [Suspect]
     Indication: ANXIETY
     Dosage: ORAL
     Route: 048
  2. FLUPENTHIXOL(PHUPENTHIXOL) [Suspect]
     Dosage: ORAL
     Route: 048
  3. IRON [Concomitant]

REACTIONS (1)
  - CORNEAL DEPOSITS [None]
